FAERS Safety Report 20512506 (Version 1)
Quarter: 2022Q1

REPORT INFORMATION
  Report Type: Spontaneous
  Country: US (occurrence: US)
  Receive Date: 20220224
  Receipt Date: 20220224
  Transmission Date: 20220424
  Serious: Yes (Other)
  Sender: FDA-Public Use
  Company Number: US-PFIZER INC-202200248542

PATIENT
  Age: 79 Year
  Sex: Female

DRUGS (1)
  1. BOSULIF [Suspect]
     Active Substance: BOSUTINIB MONOHYDRATE
     Dosage: 200 MG, DAILY (NIGHT)
     Route: 048
     Dates: end: 20220113

REACTIONS (2)
  - Urinary tract infection [Unknown]
  - Abdominal pain upper [Unknown]
